FAERS Safety Report 12892762 (Version 1)
Quarter: 2016Q4

REPORT INFORMATION
  Report Type: Spontaneous
  Country: BA (occurrence: BA)
  Receive Date: 20161028
  Receipt Date: 20161028
  Transmission Date: 20170207
  Serious: Yes (Hospitalization)
  Sender: FDA-Public Use
  Company Number: BA-BAYER-2016-203055

PATIENT
  Age: 62 Year
  Sex: Male

DRUGS (7)
  1. ENAP [Concomitant]
     Active Substance: ENALAPRIL
     Dosage: 20 MG, HS
  2. PLAVIX [Concomitant]
     Active Substance: CLOPIDOGREL BISULFATE
     Dosage: 75 MG, OM
  3. ROSUVASTATIN CALCIUM. [Concomitant]
     Active Substance: ROSUVASTATIN CALCIUM
     Dosage: 10 MG, HS
  4. DILATREND [Concomitant]
     Active Substance: CARVEDILOL
     Dosage: 0.5 DF, BID
  5. ENAP H [Concomitant]
     Dosage: 20 MG, OM
  6. SIOFOR [Concomitant]
     Active Substance: METFORMIN HYDROCHLORIDE
     Dosage: 1000 MG, BID
  7. ASPIRIN PROTECT [Suspect]
     Active Substance: ASPIRIN
     Dosage: 1 DF, HS

REACTIONS (10)
  - Hemianaesthesia [None]
  - Romberg test positive [None]
  - Facial paresis [None]
  - Paraesthesia [None]
  - Gait spastic [None]
  - Cerebral infarction [None]
  - Cerebral ischaemia [None]
  - Reflexes abnormal [None]
  - Headache [None]
  - Hemiparesis [None]

NARRATIVE: CASE EVENT DATE: 201606
